FAERS Safety Report 9759675 (Version 2)
Quarter: 2015Q3

REPORT INFORMATION
  Report Type: Spontaneous
  Country: US (occurrence: US)
  Receive Date: 20131216
  Receipt Date: 20150806
  Transmission Date: 20151125
  Serious: No
  Sender: FDA-Public Use
  Company Number: US-GILEAD-2010-0028601

PATIENT
  Age: 78 Year
  Sex: Female
  Weight: 58.51 kg

DRUGS (8)
  1. PRILOSEC [Concomitant]
     Active Substance: OMEPRAZOLE MAGNESIUM
  2. K-DUR [Concomitant]
     Active Substance: POTASSIUM CHLORIDE
  3. LETAIRIS [Suspect]
     Active Substance: AMBRISENTAN
     Indication: PULMONARY ARTERIAL HYPERTENSION
     Route: 048
     Dates: start: 20080731
  4. OXYGEN. [Concomitant]
     Active Substance: OXYGEN
  5. LASIX [Concomitant]
     Active Substance: FUROSEMIDE
  6. METOLAZONE. [Concomitant]
     Active Substance: METOLAZONE
  7. ACETAMIN [Concomitant]
  8. REVATIO [Concomitant]
     Active Substance: SILDENAFIL CITRATE

REACTIONS (1)
  - Syncope [Unknown]
